FAERS Safety Report 5975954-2 (Version None)
Quarter: 2008Q4

REPORT INFORMATION
  Report Type: 
  Country: None (occurrence: None)
  Receive Date: 20081124
  Receipt Date: 20080318
  Transmission Date: 20090506
  Serious: Yes (Other)
  Sender: FDA-Public Use
  Company Number: 46351

PATIENT
  Age: 72 Year
  Sex: Male
  Weight: 110 kg

DRUGS (1)
  1. AMIODARONE HCL [Suspect]
     Dosage: 300MG/250ML IV OVER 2 HOURS
     Route: 042
     Dates: start: 20080318

REACTIONS (1)
  - EXTRAVASATION [None]
